FAERS Safety Report 4303211-9 (Version None)
Quarter: 2004Q1

REPORT INFORMATION
  Report Type: 
  Country: None (occurrence: None)
  Receive Date: 20040224
  Receipt Date: 20040213
  Transmission Date: 20041129
  Serious: Yes (Other)
  Sender: FDA-Public Use
  Company Number: US-BRISTOL-MYERS SQUIBB COMPANY-12504643

PATIENT
  Age: 53 Year
  Sex: Female
  Weight: 81 kg

DRUGS (6)
  1. TAXOL [Suspect]
     Dates: start: 20031114, end: 20031114
  2. CARBOPLATIN [Concomitant]
     Dates: start: 20031114, end: 20031114
  3. CLARITIN [Concomitant]
  4. SINGULAIR [Concomitant]
  5. ESTRATEST [Concomitant]
  6. PROMETRIUM [Concomitant]

REACTIONS (2)
  - DEPRESSED MOOD [None]
  - MUSCLE SPASMS [None]
